FAERS Safety Report 17510769 (Version 1)
Quarter: 2020Q1

REPORT INFORMATION
  Report Type: Spontaneous
  Country: US (occurrence: US)
  Receive Date: 20200306
  Receipt Date: 20200306
  Transmission Date: 20200409
  Serious: No
  Sender: FDA-Public Use
  Company Number: US-HARMONY BIOSCIENCES-2020HMY00120

PATIENT
  Sex: Female

DRUGS (4)
  1. WAKIX [Suspect]
     Active Substance: PITOLISANT HYDROCHLORIDE
     Dosage: UNK
     Dates: start: 20200122
  2. WAKIX [Suspect]
     Active Substance: PITOLISANT HYDROCHLORIDE
     Dosage: UNK
     Dates: start: 20200122
  3. PROPOFOL. [Suspect]
     Active Substance: PROPOFOL
     Dosage: UNK
     Dates: start: 20200207, end: 20200207
  4. MIRENA [Suspect]
     Active Substance: LEVONORGESTREL
     Dosage: UNK
     Route: 015
     Dates: start: 20200207

REACTIONS (2)
  - Postoperative hypotension [Recovered/Resolved]
  - Drug interaction [Unknown]

NARRATIVE: CASE EVENT DATE: 20200207
